FAERS Safety Report 12396790 (Version 1)
Quarter: 2016Q2

REPORT INFORMATION
  Report Type: Spontaneous
  Country: US (occurrence: None)
  Receive Date: 20160523
  Receipt Date: 20160523
  Transmission Date: 20160815
  Serious: No
  Sender: FDA-Public Use
  Company Number: None

PATIENT
  Age: 43 Year
  Sex: Female

DRUGS (1)
  1. PEGASPARAGINASE [Suspect]
     Active Substance: PEGASPARGASE
     Indication: NEOPLASM MALIGNANT
     Dosage: 3958 UNITS ONCE IV
     Route: 042
     Dates: start: 20160318, end: 20160318

REACTIONS (3)
  - Blood triglycerides increased [None]
  - High density lipoprotein decreased [None]
  - Blood cholesterol increased [None]

NARRATIVE: CASE EVENT DATE: 20160328
